FAERS Safety Report 20533300 (Version 1)
Quarter: 2022Q1

REPORT INFORMATION
  Report Type: Spontaneous
  Country: US (occurrence: None)
  Receive Date: 20220301
  Receipt Date: 20220301
  Transmission Date: 20220423
  Serious: Yes (Disabling)
  Sender: FDA-Public Use
  Company Number: None

PATIENT
  Age: 71 Year
  Sex: Female
  Weight: 99 kg

DRUGS (1)
  1. PROLIA [Suspect]
     Active Substance: DENOSUMAB
     Indication: Osteoarthritis
     Dosage: OTHER FREQUENCY : EVERY 6 MOS X 2;?
     Route: 061
     Dates: start: 20220128, end: 20220128

REACTIONS (5)
  - Groin pain [None]
  - Pain in extremity [None]
  - Arthralgia [None]
  - Impaired work ability [None]
  - Pain in extremity [None]

NARRATIVE: CASE EVENT DATE: 20220128
